FAERS Safety Report 9472967 (Version 2)
Quarter: 2013Q3

REPORT INFORMATION
  Report Type: Spontaneous
  Country: US (occurrence: US)
  Receive Date: 20130823
  Receipt Date: 20130823
  Transmission Date: 20140515
  Serious: Yes (Other)
  Sender: FDA-Public Use
  Company Number: US-BRISTOL-MYERS SQUIBB COMPANY-17285743

PATIENT
  Age: 48 Year
  Sex: Female
  Weight: 52.15 kg

DRUGS (8)
  1. SPRYCEL [Suspect]
     Indication: ACUTE LYMPHOCYTIC LEUKAEMIA
     Route: 048
     Dates: start: 201110, end: 20130102
  2. ATIVAN [Concomitant]
  3. CENTRUM [Concomitant]
  4. LISINOPRIL [Concomitant]
  5. OXYCODONE [Concomitant]
  6. OXYCONTIN [Concomitant]
  7. VORICONAZOLE [Concomitant]
  8. ZANTAC [Concomitant]

REACTIONS (1)
  - Malignant neoplasm progression [Unknown]
